FAERS Safety Report 16463383 (Version 3)
Quarter: 2019Q3

REPORT INFORMATION
  Report Type: Spontaneous
  Country: US (occurrence: US)
  Receive Date: 20190621
  Receipt Date: 20190920
  Transmission Date: 20191004
  Serious: Yes (Death, Other)
  Sender: FDA-Public Use
  Company Number: US-ASTRAZENECA-2018SF66218

PATIENT
  Age: 69 Year
  Sex: Male

DRUGS (29)
  1. NEXIUM [Suspect]
     Active Substance: ESOMEPRAZOLE MAGNESIUM
     Route: 048
     Dates: start: 20130306
  2. CEFUROXIME. [Concomitant]
     Active Substance: CEFUROXIME
  3. AMLODIPINE [Concomitant]
     Active Substance: AMLODIPINE BESYLATE
  4. AMOXICILLIN. [Concomitant]
     Active Substance: AMOXICILLIN
  5. SENSIPAR [Concomitant]
     Active Substance: CINACALCET HYDROCHLORIDE
  6. GABAPENTIN. [Concomitant]
     Active Substance: GABAPENTIN
  7. TRAMADOL. [Concomitant]
     Active Substance: TRAMADOL
  8. NEXIUM [Suspect]
     Active Substance: ESOMEPRAZOLE MAGNESIUM
     Dosage: 40 MG
     Route: 048
  9. FLUTICASONE. [Concomitant]
     Active Substance: FLUTICASONE
  10. ZOLPIDEM [Concomitant]
     Active Substance: ZOLPIDEM TARTRATE
  11. PENICILLIN [Concomitant]
     Active Substance: PENICILLIN
  12. HYDROCODONE [Concomitant]
     Active Substance: HYDROCODONE
  13. FUROSEMIDE. [Concomitant]
     Active Substance: FUROSEMIDE
  14. NOVOLOG [Concomitant]
     Active Substance: INSULIN ASPART
  15. RENA-VITE [Concomitant]
     Active Substance: ASCORBIC ACID\BIOTIN\CALCIUM PANTOTHENATE\CYANOCOBALAMIN\FOLIC ACID\NIACINAMIDE\PYRIDOXINE HYDROCHLORIDE\RIBOFLAVIN\THIAMINE MONONITRATE
  16. CHERATUSSIN [Concomitant]
     Active Substance: AMMONIUM CHLORIDE\DEXTROMETHORPHAN\SODIUM CITRATE
  17. METOPROLOL. [Concomitant]
     Active Substance: METOPROLOL
  18. MECLIZINE [Concomitant]
     Active Substance: MECLIZINE HYDROCHLORIDE
  19. PROLENSA [Concomitant]
     Active Substance: BROMFENAC SODIUM
  20. OMEPRAZOLE. [Suspect]
     Active Substance: OMEPRAZOLE
     Dosage: GENERIC 40 MG
     Route: 065
  21. AMLODIPINE [Concomitant]
     Active Substance: AMLODIPINE BESYLATE
  22. SIMVASTATIN. [Concomitant]
     Active Substance: SIMVASTATIN
  23. CALCITRIOL. [Concomitant]
     Active Substance: CALCITRIOL
  24. PACERONE [Concomitant]
     Active Substance: AMIODARONE HYDROCHLORIDE
  25. AMIODARONE [Concomitant]
     Active Substance: AMIODARONE
  26. PREDNISONE. [Concomitant]
     Active Substance: PREDNISONE
  27. ATENOLOL. [Concomitant]
     Active Substance: ATENOLOL
  28. LISINOPRIL. [Concomitant]
     Active Substance: LISINOPRIL
  29. ALLOPURINOL. [Concomitant]
     Active Substance: ALLOPURINOL

REACTIONS (5)
  - Renal injury [Unknown]
  - Rebound acid hypersecretion [Unknown]
  - Renal failure [Not Recovered/Not Resolved]
  - Death [Fatal]
  - Chronic kidney disease [Unknown]

NARRATIVE: CASE EVENT DATE: 2013
